FAERS Safety Report 4324839-6 (Version None)
Quarter: 2004Q1

REPORT INFORMATION
  Report Type: 
  Country: None (occurrence: None)
  Receive Date: 20040323
  Receipt Date: 20040309
  Transmission Date: 20041129
  Serious: Yes (Hospitalization)
  Sender: FDA-Public Use
  Company Number: 2004008075

PATIENT
  Sex: Male

DRUGS (1)
  1. ZYRTEC [Suspect]
     Indication: HYPERSENSITIVITY
     Dates: end: 20030301

REACTIONS (4)
  - AUTOANTIBODY POSITIVE [None]
  - FEELING ABNORMAL [None]
  - GILBERT'S SYNDROME [None]
  - HEPATITIS [None]
